FAERS Safety Report 5007656-3 (Version None)
Quarter: 2006Q2

REPORT INFORMATION
  Report Type: 
  Country: None (occurrence: None)
  Receive Date: 20060522
  Receipt Date: 20060512
  Transmission Date: 20061013
  Serious: Yes (Other)
  Sender: FDA-Public Use
  Company Number: JP-AVENTIS-200611498JP

PATIENT
  Age: 32 Year
  Sex: Female
  Weight: 49.9 kg

DRUGS (5)
  1. ARAVA [Suspect]
     Indication: RHEUMATOID ARTHRITIS
     Route: 048
     Dates: start: 20050822, end: 20050824
  2. ARAVA [Suspect]
     Route: 048
     Dates: start: 20050825
  3. PREDONINE [Concomitant]
     Indication: RHEUMATOID ARTHRITIS
     Route: 048
     Dates: start: 19990903
  4. VOLTAREN [Concomitant]
     Indication: RHEUMATOID ARTHRITIS
     Route: 048
     Dates: start: 20000707
  5. SOLON [Concomitant]
     Route: 048
     Dates: start: 19990922

REACTIONS (2)
  - PYREXIA [None]
  - SYSTEMIC LUPUS ERYTHEMATOSUS [None]
